FAERS Safety Report 12590380 (Version 1)
Quarter: 2016Q3

REPORT INFORMATION
  Report Type: Report from Study
  Country: US (occurrence: US)
  Receive Date: 20160725
  Receipt Date: 20160725
  Transmission Date: 20161109
  Serious: Yes (Hospitalization)
  Sender: FDA-Public Use
  Company Number: US-EXELIXIS-XL18416006746

PATIENT
  Age: 40 Year
  Sex: Female

DRUGS (13)
  1. XL184 [Suspect]
     Active Substance: CABOZANTINIB
     Indication: BREAST CANCER
     Dosage: 60 MG, QD
     Route: 048
     Dates: start: 20160608
  2. ZOFRAN [Concomitant]
     Active Substance: ONDANSETRON HYDROCHLORIDE
  3. DEXAMETHASONE. [Concomitant]
     Active Substance: DEXAMETHASONE
  4. LOVENOX [Concomitant]
     Active Substance: ENOXAPARIN SODIUM
  5. ZYRTEC [Concomitant]
     Active Substance: CETIRIZINE HYDROCHLORIDE
  6. OMEPRAZOLE. [Concomitant]
     Active Substance: OMEPRAZOLE
  7. XL184 [Suspect]
     Active Substance: CABOZANTINIB
     Indication: METASTASES TO CENTRAL NERVOUS SYSTEM
  8. TESSALON [Concomitant]
     Active Substance: BENZONATATE
  9. COMPAZINE [Concomitant]
     Active Substance: PROCHLORPERAZINE MALEATE
  10. ALBUTEROL. [Concomitant]
     Active Substance: ALBUTEROL
  11. ATIVAN [Concomitant]
     Active Substance: LORAZEPAM
  12. OXYCODONE [Concomitant]
     Active Substance: OXYCODONE
  13. ROBITUSSIN (GUAIFENESIN) [Concomitant]
     Active Substance: GUAIFENESIN

REACTIONS (1)
  - Pneumonia [Recovering/Resolving]

NARRATIVE: CASE EVENT DATE: 20160715
